FAERS Safety Report 25043186 (Version 1)
Quarter: 2025Q1

REPORT INFORMATION
  Report Type: Spontaneous
  Country: US (occurrence: US)
  Receive Date: 20250305
  Receipt Date: 20250305
  Transmission Date: 20250408
  Serious: No
  Sender: TEVA
  Company Number: US-TEVA-VS-3299439

PATIENT
  Age: 31 Year
  Sex: Male
  Weight: 57.6 kg

DRUGS (1)
  1. AUSTEDO [Suspect]
     Active Substance: DEUTETRABENAZINE
     Indication: Product used for unknown indication
     Route: 065

REACTIONS (6)
  - Diarrhoea [Unknown]
  - Body temperature increased [Unknown]
  - Somnolence [Unknown]
  - Insomnia [Unknown]
  - Balance disorder [Unknown]
  - Adverse drug reaction [Unknown]
